FAERS Safety Report 4717238-6 (Version None)
Quarter: 2005Q3

REPORT INFORMATION
  Report Type: 
  Country: None (occurrence: None)
  Receive Date: 20050715
  Receipt Date: 20050706
  Transmission Date: 20060218
  Serious: Yes (Hospitalization)
  Sender: FDA-Public Use
  Company Number: 2005-02344

PATIENT
  Age: 61 Year
  Sex: Female

DRUGS (4)
  1. TRAMADOL HCL [Suspect]
     Indication: SCIATICA
     Dosage: 50 MG X 1 DOSE, ORAL
     Route: 048
     Dates: start: 20050101
  2. ENALAPRIL [Concomitant]
  3. DILTIAZEM [Concomitant]
  4. BUDESONIDE [Concomitant]

REACTIONS (2)
  - ANGIONEUROTIC OEDEMA [None]
  - RESPIRATORY DISTRESS [None]
